FAERS Safety Report 7237814-9 (Version None)
Quarter: 2011Q1

REPORT INFORMATION
  Report Type: 
  Country: None (occurrence: None)
  Receive Date: 20110113
  Receipt Date: 20110105
  Transmission Date: 20110831
  Serious: Yes (Death, Hospitalization)
  Sender: FDA-Public Use
  Company Number: CIP10001920

PATIENT
  Age: 79 Year
  Sex: Male

DRUGS (7)
  1. KARDEGIC /00002703/ (ACETYLSALICYLATE LYSINE) [Suspect]
     Dosage: 75 MG ORAL POWDER SOLUTION DAILY, ORAL
     Route: 048
  2. IRBESARTAN [Suspect]
     Dosage: 150 MG DAILY, ORAL
     Route: 048
  3. TENORMIN [Suspect]
     Dosage: 25 MG DAILY, ORAL
     Route: 048
  4. FURADANTIN [Suspect]
     Dosage: 50 MG THREE TIMES A DAY, ORAL; 50 MG EVERY TWO DAYS, ORAL
     Route: 048
     Dates: start: 20100612, end: 20100705
  5. FURADANTIN [Suspect]
     Dosage: 50 MG THREE TIMES A DAY, ORAL; 50 MG EVERY TWO DAYS, ORAL
     Route: 048
     Dates: start: 20091201, end: 20100401
  6. STAGID (METFORMIN EMBONATE) [Suspect]
     Dosage: 700 MG TWICE DAILY, ORAL
     Route: 048
  7. ALLOPURINOL [Suspect]
     Dosage: 300 MG DAILY, ORAL
     Route: 048

REACTIONS (1)
  - HEPATIC FAILURE [None]
